FAERS Safety Report 9544060 (Version 3)
Quarter: 2013Q4

REPORT INFORMATION
  Report Type: Report from Study
  Country: BR (occurrence: BR)
  Receive Date: 20130923
  Receipt Date: 20131017
  Transmission Date: 20140711
  Serious: Yes (Other)
  Sender: FDA-Public Use
  Company Number: BR-ROCHE-1278752

PATIENT
  Sex: Female

DRUGS (7)
  1. XOLAIR [Suspect]
     Indication: BRONCHITIS
     Route: 065
  2. XOLAIR [Suspect]
     Indication: ASTHMA
  3. FORASEQ [Suspect]
     Indication: ASTHMA
     Dosage: 12/400 MCG
     Route: 055
     Dates: start: 200506, end: 20130910
  4. FORASEQ [Suspect]
     Indication: PULMONARY OEDEMA
  5. FORASEQ [Suspect]
     Indication: OFF LABEL USE
  6. BUDESONIDE [Suspect]
     Indication: ASTHMA
     Route: 055
     Dates: start: 20130910
  7. BUDESONIDE [Suspect]
     Route: 055
     Dates: start: 20130910

REACTIONS (1)
  - Pneumonia [Not Recovered/Not Resolved]
